FAERS Safety Report 7568662-8 (Version None)
Quarter: 2011Q2

REPORT INFORMATION
  Report Type: 
  Country: None (occurrence: None)
  Receive Date: 20110623
  Receipt Date: 20110620
  Transmission Date: 20111010
  Serious: Yes (Hospitalization, Other)
  Sender: FDA-Public Use
  Company Number: US-BRISTOL-MYERS SQUIBB COMPANY-15821432

PATIENT
  Age: 61 Year
  Sex: Female

DRUGS (1)
  1. YERVOY [Suspect]
     Indication: METASTATIC MALIGNANT MELANOMA
     Dosage: 170MG
     Route: 042
     Dates: start: 20110608

REACTIONS (2)
  - STAPHYLOCOCCAL INFECTION [None]
  - PYREXIA [None]
